FAERS Safety Report 17415900 (Version 1)
Quarter: 2020Q1

REPORT INFORMATION
  Report Type: Spontaneous
  Country: US (occurrence: US)
  Receive Date: 20200213
  Receipt Date: 20200213
  Transmission Date: 20200409
  Serious: No
  Sender: FDA-Public Use
  Company Number: US-SUNOVION-2020SUN000431

PATIENT
  Sex: Male

DRUGS (1)
  1. APTIOM [Suspect]
     Active Substance: ESLICARBAZEPINE ACETATE
     Dosage: 200 MG
     Route: 048
     Dates: start: 202001

REACTIONS (3)
  - Underdose [Unknown]
  - Myopia [Unknown]
  - Visual impairment [Unknown]

NARRATIVE: CASE EVENT DATE: 202001
